FAERS Safety Report 8495177-5 (Version None)
Quarter: 2012Q3

REPORT INFORMATION
  Report Type: 
  Country: None (occurrence: None)
  Receive Date: 20120709
  Receipt Date: 20120628
  Transmission Date: 20120928
  Serious: Yes (Hospitalization)
  Sender: FDA-Public Use
  Company Number: US-BAYER-200942472NA

PATIENT
  Age: 43 Year
  Sex: Female
  Weight: 68.182 kg

DRUGS (24)
  1. YASMIN [Suspect]
     Route: 048
     Dates: start: 20040607, end: 20080506
  2. NEXIUM [Concomitant]
     Indication: GASTROOESOPHAGEAL REFLUX DISEASE
     Dosage: 40 MG/D, UNK
     Route: 048
     Dates: start: 20030130, end: 20070812
  3. CALCIUM W/VITAMIN D NOS [Concomitant]
  4. HYDROCODONE [Concomitant]
     Indication: PAIN
     Route: 065
     Dates: start: 20011105
  5. CALCIUM [Concomitant]
     Route: 065
     Dates: start: 20000101
  6. KEFLEX [Concomitant]
     Dosage: 500 MG, UNK
     Route: 048
  7. BUPROPION HYDROCHLORIDE [Concomitant]
     Indication: STRESS
     Route: 065
     Dates: start: 20050527, end: 20060823
  8. FISH OIL [Concomitant]
     Dosage: 1000 MG, UNK
     Route: 048
  9. SYNTHROID [Concomitant]
     Dosage: 100 ?G/D, UNK
     Route: 048
     Dates: start: 20060101
  10. VITAMIN B12 NOS W/VITAMIN B6 [Concomitant]
     Dosage: 500 MG, UNK
     Route: 048
  11. IRON [Concomitant]
  12. IBUPROFEN [Concomitant]
     Route: 065
     Dates: start: 20071228
  13. OXYCODONE HCL [Concomitant]
     Indication: PAIN
     Route: 065
     Dates: start: 20031120, end: 20090314
  14. CYMBALTA [Concomitant]
     Indication: STRESS
     Dosage: 60 MG/D, UNK
     Route: 048
     Dates: start: 20020501, end: 20080601
  15. ONE-A-DAY [Concomitant]
     Indication: STRESS
     Route: 065
     Dates: start: 20000101
  16. ASCORBIC ACID [Concomitant]
     Dosage: 500 MG, UNK
     Route: 048
  17. PERCOCET [Concomitant]
  18. YAZ [Suspect]
     Route: 048
     Dates: start: 20080710, end: 20090301
  19. CELEBREX [Concomitant]
     Route: 065
     Dates: start: 20080211
  20. NAPROSYN [Concomitant]
     Route: 065
     Dates: start: 20040820
  21. NEXIUM [Concomitant]
     Dosage: 40 MG, UNK
     Route: 048
  22. GUAIFENESIN [Concomitant]
     Indication: PRODUCTIVE COUGH
     Route: 065
     Dates: start: 20000424, end: 20080501
  23. CELEXA [Concomitant]
     Indication: STRESS
     Route: 065
     Dates: start: 20080101
  24. GLUCOSAMINE [Concomitant]

REACTIONS (3)
  - CHEST PAIN [None]
  - PULMONARY EMBOLISM [None]
  - DYSPNOEA [None]
